FAERS Safety Report 10062867 (Version 1)
Quarter: 2014Q2

REPORT INFORMATION
  Report Type: Spontaneous
  Country: EG (occurrence: EG)
  Receive Date: 20140407
  Receipt Date: 20140407
  Transmission Date: 20141212
  Serious: Yes (Life-Threatening)
  Sender: FDA-Public Use
  Company Number: EG-BAYER-2014-051784

PATIENT
  Age: 25 Year
  Sex: Female
  Weight: 54.88 kg

DRUGS (1)
  1. ULTRAVIST [Suspect]
     Indication: COMPUTERISED TOMOGRAM ABDOMEN
     Dosage: 81 ML, ONCE
     Route: 042

REACTIONS (2)
  - Hypotension [Recovered/Resolved]
  - Tachycardia [Recovered/Resolved]
